FAERS Safety Report 9018815 (Version 3)
Quarter: 2013Q4

REPORT INFORMATION
  Report Type: Report from Study
  Country: CO (occurrence: CO)
  Receive Date: 20130118
  Receipt Date: 20131121
  Transmission Date: 20140711
  Serious: Yes (Hospitalization)
  Sender: FDA-Public Use
  Company Number: 2013SP000037

PATIENT
  Age: 23 Year
  Sex: Male
  Weight: 69 kg

DRUGS (2)
  1. SM-13496 [Suspect]
     Indication: BIPOLAR DISORDER
     Route: 048
     Dates: start: 20121008, end: 20121221
  2. DIVALPROEX SODIUM [Concomitant]
     Indication: PRODUCT USED FOR UNKNOWN INDICATION
     Dates: end: 20121123

REACTIONS (1)
  - Depression [Recovered/Resolved]
